FAERS Safety Report 9027051 (Version 6)
Quarter: 2014Q1

REPORT INFORMATION
  Report Type: Report from Study
  Country: GB (occurrence: GB)
  Receive Date: 20130123
  Receipt Date: 20140121
  Transmission Date: 20141002
  Serious: Yes (Hospitalization)
  Sender: FDA-Public Use
  Company Number: GB-PFIZER INC-2012255843

PATIENT
  Age: 66 Year
  Sex: Male

DRUGS (13)
  1. SUNITINIB MALATE [Suspect]
     Indication: TRANSITIONAL CELL CARCINOMA
     Dosage: 25 MG, UNK
     Route: 065
     Dates: start: 20120927, end: 20120928
  2. GEMCITABINE [Suspect]
     Dosage: 1900 MG, UNK
     Route: 042
     Dates: start: 20121011, end: 20121128
  3. CISPLATIN [Suspect]
     Dosage: 135 MG, UNK
     Route: 042
     Dates: start: 20120926, end: 20121121
  4. MORPHINE SULFATE [Suspect]
     Dosage: 100 MG, 1X/DAY
     Route: 048
     Dates: start: 20121001
  5. ORAMORPH [Suspect]
     Dosage: UNK, AS NEEDED
     Route: 048
     Dates: start: 20120918
  6. PREDNISOLONE [Concomitant]
     Dosage: 7.5 MG, 1X/DAY
     Route: 048
     Dates: start: 201009
  7. TAMSULOSIN [Concomitant]
     Dosage: 400 UG, 1X/DAY
     Route: 048
     Dates: start: 20120401
  8. PARACETAMOL [Concomitant]
     Dosage: 4 G, 1X/DAY
     Route: 048
     Dates: start: 201206
  9. DULCOLAX [Concomitant]
     Dosage: UNK
     Route: 048
     Dates: start: 201206
  10. METOCLOPRAMIDE [Concomitant]
     Dosage: 30-60 MG/DAY, 1X/DAY
     Route: 048
     Dates: start: 20120921
  11. BUCCALSONE [Concomitant]
     Dosage: 2-4 MG A DAY, 1X/DAY
     Route: 048
     Dates: start: 20121011
  12. MOVICOL [Concomitant]
     Dosage: UNK
     Route: 048
     Dates: start: 20121010
  13. HYDROCORTISONE SODIUM SUCCINATE [Concomitant]
     Dosage: UNK, 1X/DAY
     Route: 048
     Dates: start: 20121110

REACTIONS (3)
  - Vomiting [Not Recovered/Not Resolved]
  - Nausea [Not Recovered/Not Resolved]
  - Deep vein thrombosis [Not Recovered/Not Resolved]
